FAERS Safety Report 10332267 (Version 1)
Quarter: 2014Q3

REPORT INFORMATION
  Report Type: Spontaneous
  Country: US (occurrence: None)
  Receive Date: 20140721
  Receipt Date: 20140721
  Transmission Date: 20150326
  Serious: Yes (Other)
  Sender: FDA-Public Use
  Company Number: None

PATIENT
  Age: 53 Year
  Sex: Female
  Weight: 90.72 kg

DRUGS (1)
  1. LYRICA [Suspect]
     Active Substance: PREGABALIN
     Indication: BACK PAIN
     Dosage: ONE CAPSULE ONCE DAILY TAKEN BY MOUTH
     Route: 048
     Dates: start: 20140619, end: 20140717

REACTIONS (10)
  - Somnolence [None]
  - Lip swelling [None]
  - Lip blister [None]
  - Nausea [None]
  - Tremor [None]
  - Pruritus [None]
  - Hyperhidrosis [None]
  - Anxiety [None]
  - Cheilitis [None]
  - Withdrawal syndrome [None]

NARRATIVE: CASE EVENT DATE: 20140717
